FAERS Safety Report 20421215 (Version 1)
Quarter: 2022Q1

REPORT INFORMATION
  Report Type: Spontaneous
  Country: US (occurrence: US)
  Receive Date: 20220203
  Receipt Date: 20220203
  Transmission Date: 20220423
  Serious: No
  Sender: FDA-Public Use
  Company Number: US-LEO Pharma-340852

PATIENT
  Age: 63 Year
  Sex: Female
  Weight: 100 kg

DRUGS (5)
  1. TACROLIMUS [Suspect]
     Active Substance: TACROLIMUS
     Indication: Pruritus
     Dosage: TACROLIMUS 0.1% 6P8 (TACROLIMUS), SMALL AMOUNT, SINGLE
     Route: 061
     Dates: start: 20220122, end: 20220122
  2. TACROLIMUS [Suspect]
     Active Substance: TACROLIMUS
     Indication: Pruritus
     Dosage: TACROLIMUS 0.1% 6P8 (TACROLIMUS), SMALL AMOUNT, SINGLE
     Route: 061
     Dates: start: 20220122, end: 20220122
  3. PROPRANOLOL [Concomitant]
     Active Substance: PROPRANOLOL HYDROCHLORIDE
     Indication: Product used for unknown indication
  4. HYDROCHLOROTHIAZIDE [Concomitant]
     Active Substance: HYDROCHLOROTHIAZIDE
     Indication: Product used for unknown indication
  5. METFORMIN [Concomitant]
     Active Substance: METFORMIN HYDROCHLORIDE
     Indication: Product used for unknown indication
     Dosage: START DATE:--2020

REACTIONS (4)
  - Application site irritation [Recovered/Resolved]
  - Application site pruritus [Recovered/Resolved]
  - Application site pain [Recovered/Resolved]
  - Product use in unapproved indication [Unknown]

NARRATIVE: CASE EVENT DATE: 20220122
